FAERS Safety Report 7726758-1 (Version None)
Quarter: 2011Q3

REPORT INFORMATION
  Report Type: 
  Country: None (occurrence: None)
  Receive Date: 20110902
  Receipt Date: 20110824
  Transmission Date: 20111222
  Serious: Yes (Hospitalization)
  Sender: FDA-Public Use
  Company Number: US-GLAXOSMITHKLINE-A0802279A

PATIENT
  Age: 78 Year
  Sex: Male

DRUGS (11)
  1. LORTAB [Concomitant]
  2. GLUCOPHAGE [Concomitant]
  3. AVANDIA [Suspect]
     Indication: DIABETES MELLITUS
     Dosage: 8MG PER DAY
     Route: 048
     Dates: start: 20030601, end: 20070301
  4. COREG [Concomitant]
  5. PROTONIX [Concomitant]
  6. LESCOL [Concomitant]
  7. ACCUPRIL [Concomitant]
  8. NORVASC [Concomitant]
  9. ZOLOFT [Concomitant]
  10. GLYBURIDE [Concomitant]
  11. LASIX [Concomitant]

REACTIONS (2)
  - CEREBROVASCULAR ACCIDENT [None]
  - CHEST PAIN [None]
